FAERS Safety Report 8115073-2 (Version None)
Quarter: 2012Q1

REPORT INFORMATION
  Report Type: 
  Country: None (occurrence: None)
  Receive Date: 20120131
  Receipt Date: 20120124
  Transmission Date: 20120608
  Serious: Yes (Death, Hospitalization, Disabling)
  Sender: FDA-Public Use
  Company Number: WAES 1201USA03256

PATIENT
  Age: 13 Year
  Sex: Male
  Weight: 55.7924 kg

DRUGS (2)
  1. IOBENGUANE SULFATE I 131 [Suspect]
     Indication: NEUROBLASTOMA
     Dosage: UNK/1X/IV
     Route: 042
     Dates: start: 20111208, end: 20111208
  2. CAP VORINOSTAT UNK [Suspect]
     Indication: NEUROBLASTOMA
     Dosage: 350 MG/DAILY/PO
     Route: 048
     Dates: start: 20111206, end: 20111219

REACTIONS (4)
  - VOMITING [None]
  - SUBDURAL HAEMATOMA [None]
  - PAIN [None]
  - BRAIN HERNIATION [None]
